FAERS Safety Report 6171172-6 (Version None)
Quarter: 2009Q2

REPORT INFORMATION
  Report Type: 
  Country: None (occurrence: None)
  Receive Date: 20090427
  Receipt Date: 20090420
  Transmission Date: 20091009
  Serious: Yes (Hospitalization)
  Sender: FDA-Public Use
  Company Number: TCI2009A01402

PATIENT
  Age: 70 Year
  Sex: Male

DRUGS (3)
  1. ACTOS [Suspect]
     Indication: DIABETES MELLITUS
     Dosage: 15 MG (15 MG,1 D) PER ORAL
     Route: 048
     Dates: end: 20090420
  2. LIPITOR [Suspect]
     Dosage: PER ORAL
     Route: 048
     Dates: end: 20090413
  3. CANDESARTAN CILEXETIL [Concomitant]

REACTIONS (1)
  - RHABDOMYOLYSIS [None]
